FAERS Safety Report 17618682 (Version 4)
Quarter: 2020Q2

REPORT INFORMATION
  Report Type: Report from Study
  Country: None (occurrence: US)
  Receive Date: 20200403
  Receipt Date: 20200424
  Transmission Date: 20200713
  Serious: Yes (Death)
  Sender: FDA-Public Use
  Company Number: US-ABBVIE-20P-163-3349220-00

PATIENT
  Age: 86 Year
  Sex: Female

DRUGS (1)
  1. IMBRUVICA [Suspect]
     Active Substance: IBRUTINIB
     Indication: BURKITT^S LYMPHOMA
     Route: 048
     Dates: start: 202002, end: 20200224

REACTIONS (1)
  - Death [Fatal]

NARRATIVE: CASE EVENT DATE: 20200305
